FAERS Safety Report 5916803-8 (Version None)
Quarter: 2008Q4

REPORT INFORMATION
  Report Type: 
  Country: None (occurrence: None)
  Receive Date: 20081013
  Receipt Date: 20080609
  Transmission Date: 20090506
  Serious: No
  Sender: FDA-Public Use
  Company Number: US-ABBOTT-08P-163-0456159-00

PATIENT
  Sex: Female

DRUGS (2)
  1. KALETRA [Suspect]
     Indication: HIV TEST POSITIVE
     Dosage: ONE TEASPOON TWICE DAILY, OF
     Route: 048
     Dates: start: 20080401
  2. EMTRICITABINE [Concomitant]
     Indication: HIV TEST POSITIVE
     Route: 048
     Dates: start: 20080401

REACTIONS (1)
  - ORAL DISCOMFORT [None]
